FAERS Safety Report 13401292 (Version 1)
Quarter: 2017Q2

REPORT INFORMATION
  Report Type: Spontaneous
  Country: GB (occurrence: GB)
  Receive Date: 20170404
  Receipt Date: 20170404
  Transmission Date: 20170830
  Serious: Yes (Hospitalization, Other)
  Sender: FDA-Public Use
  Company Number: GB-MYLANLABS-2017M1019931

PATIENT

DRUGS (6)
  1. CYCLIZINE [Concomitant]
     Active Substance: CYCLIZINE
  2. ROSUVASTATIN. [Concomitant]
     Active Substance: ROSUVASTATIN
  3. FELODIPINE. [Concomitant]
     Active Substance: FELODIPINE
  4. LOPERAMIDE [Concomitant]
     Active Substance: LOPERAMIDE
  5. PARACETAMOL [Concomitant]
     Active Substance: ACETAMINOPHEN
  6. OLMESARTAN MEDOXOMIL. [Suspect]
     Active Substance: OLMESARTAN MEDOXOMIL
     Indication: ESSENTIAL HYPERTENSION
     Route: 048

REACTIONS (4)
  - Polyp [Unknown]
  - Acute kidney injury [Unknown]
  - Diverticulum [Unknown]
  - Diarrhoea [Recovering/Resolving]
